FAERS Safety Report 8498085-9 (Version None)
Quarter: 2012Q3

REPORT INFORMATION
  Report Type: 
  Country: None (occurrence: None)
  Receive Date: 20120709
  Receipt Date: 20120619
  Transmission Date: 20120928
  Serious: No
  Sender: FDA-Public Use
  Company Number: US-AMGEN-USASP2012038050

PATIENT
  Sex: Female

DRUGS (6)
  1. REMICADE [Concomitant]
  2. ENBREL [Suspect]
     Indication: PSORIATIC ARTHROPATHY
     Dosage: 50 MG, QWK
     Dates: start: 20080327, end: 20080101
  3. METHOTREXATE [Concomitant]
     Dosage: UNK
     Dates: start: 20070101
  4. ENBREL [Suspect]
     Indication: PSORIASIS
  5. HUMIRA [Concomitant]
  6. SIMPONI [Concomitant]

REACTIONS (12)
  - PSORIASIS [None]
  - INJECTION SITE REACTION [None]
  - INJECTION SITE PRURITUS [None]
  - HYPERSENSITIVITY [None]
  - PYREXIA [None]
  - INJECTION SITE ERYTHEMA [None]
  - DIZZINESS [None]
  - NAUSEA [None]
  - PSORIATIC ARTHROPATHY [None]
  - INJECTION SITE SWELLING [None]
  - INJECTION SITE HAEMATOMA [None]
  - RASH ERYTHEMATOUS [None]
